FAERS Safety Report 10896782 (Version 1)
Quarter: 2015Q1

REPORT INFORMATION
  Report Type: Spontaneous
  Country: US (occurrence: US)
  Receive Date: 20150309
  Receipt Date: 20150309
  Transmission Date: 20150721
  Serious: Yes (Death)
  Sender: FDA-Public Use
  Company Number: US-BANPHARM-20153667

PATIENT
  Age: 38 Year
  Sex: Male

DRUGS (4)
  1. PENTOBARBITAL [Suspect]
     Active Substance: PENTOBARBITAL
  2. METOCLOPRAMIDE. [Suspect]
     Active Substance: METOCLOPRAMIDE
  3. DIPHENHYDRAMINE UNKNOWN PRODUCT [Suspect]
     Active Substance: DIPHENHYDRAMINE
  4. ETHANOL [Suspect]
     Active Substance: ALCOHOL

REACTIONS (2)
  - Completed suicide [Fatal]
  - Exposure via ingestion [None]
